FAERS Safety Report 19057514 (Version 1)
Quarter: 2021Q1

REPORT INFORMATION
  Report Type: Report from Study
  Country: CN (occurrence: CN)
  Receive Date: 20210324
  Receipt Date: 20210324
  Transmission Date: 20210420
  Serious: Yes (Other)
  Sender: FDA-Public Use
  Company Number: NVSC2021CN064159

PATIENT
  Age: 66 Year
  Sex: Female

DRUGS (1)
  1. ZYKADIA [Suspect]
     Active Substance: CERITINIB
     Indication: NON-SMALL CELL LUNG CANCER
     Dosage: 450 MG, QD
     Route: 048
     Dates: start: 20190523

REACTIONS (2)
  - Gait disturbance [Unknown]
  - Pelvic organ injury [Not Recovered/Not Resolved]

NARRATIVE: CASE EVENT DATE: 202010
